FAERS Safety Report 10178623 (Version 1)
Quarter: 2014Q2

REPORT INFORMATION
  Report Type: Spontaneous
  Country: US (occurrence: US)
  Receive Date: 20140519
  Receipt Date: 20140519
  Transmission Date: 20141212
  Serious: Yes (Other)
  Sender: FDA-Public Use
  Company Number: US-ROCHE-1401633

PATIENT
  Sex: Female

DRUGS (2)
  1. XELODA [Suspect]
     Indication: OESOPHAGEAL CARCINOMA
     Route: 065
  2. WARFARIN [Concomitant]
     Route: 065

REACTIONS (1)
  - International normalised ratio fluctuation [Unknown]
